FAERS Safety Report 5795881-3 (Version None)
Quarter: 2008Q3

REPORT INFORMATION
  Report Type: 
  Country: None (occurrence: None)
  Receive Date: 20080701
  Receipt Date: 20080627
  Transmission Date: 20090109
  Serious: Yes (Other)
  Sender: FDA-Public Use
  Company Number: GB-RANBAXY-2008RR-15138

PATIENT

DRUGS (8)
  1. ATENOLOL [Suspect]
     Indication: HYPERTENSION
     Dosage: 50 MG, QD
     Dates: start: 20060503, end: 20060503
  2. LACTIC ACID [Suspect]
     Dosage: 1 DF, UNK
     Route: 062
     Dates: start: 20060503, end: 20060503
  3. LACTIC ACID [Suspect]
     Dosage: 2 DF, UNK
     Route: 062
     Dates: start: 20071106, end: 20071106
  4. LACTIC ACID [Suspect]
     Dosage: 2 DF, UNK
     Route: 062
     Dates: start: 20061011, end: 20061011
  5. LACTIC ACID [Suspect]
     Dosage: 1 DF, UNK
     Route: 062
     Dates: start: 20060630, end: 20060630
  6. BENDROFLUAZIDE [Concomitant]
     Indication: HYPERTENSION
     Dosage: 2.5 MG, UNK
  7. ISTIN [Concomitant]
  8. PERINDOPRIL ERBUMINE [Concomitant]
     Indication: HYPERTENSION
     Dosage: 8 MG, UNK
     Route: 048
     Dates: start: 20040101

REACTIONS (4)
  - ABSCESS [None]
  - GRANULOMA SKIN [None]
  - INJECTION SITE NODULE [None]
  - KELOID SCAR [None]
